FAERS Safety Report 17849458 (Version 1)
Quarter: 2020Q2

REPORT INFORMATION
  Report Type: Spontaneous
  Country: US (occurrence: US)
  Receive Date: 20200601
  Receipt Date: 20200601
  Transmission Date: 20200714
  Serious: No
  Sender: FDA-Public Use
  Company Number: None

PATIENT
  Age: 58 Year
  Sex: Female
  Weight: 54 kg

DRUGS (12)
  1. PROBIOTIC [Concomitant]
     Active Substance: PROBIOTICS NOS
  2. PROGESTERONE 100MG [Concomitant]
     Active Substance: PROGESTERONE
  3. NP THYROID [Suspect]
     Active Substance: LEVOTHYROXINE\LIOTHYRONINE
     Indication: BLOOD THYROID STIMULATING HORMONE DECREASED
     Dosage: ?          QUANTITY:1 TABLET(S);?
     Route: 048
     Dates: start: 20190410, end: 20200211
  4. CALCIUM [Concomitant]
     Active Substance: CALCIUM
  5. FISH OIL [Concomitant]
     Active Substance: FISH OIL
  6. COLLAGEN POWER [Concomitant]
  7. SERTRALINE [Concomitant]
     Active Substance: SERTRALINE HYDROCHLORIDE
  8. MULTIVITAMIN [Concomitant]
     Active Substance: VITAMINS
  9. VIT D [Concomitant]
     Active Substance: VITAMIN D NOS
  10. GLUCOSAMINE [Concomitant]
     Active Substance: GLUCOSAMINE
  11. VITAMIN B12 [Concomitant]
     Active Substance: CYANOCOBALAMIN
  12. ESTROGEL 2PUMPS [Concomitant]

REACTIONS (8)
  - Palpitations [None]
  - Ventricular extrasystoles [None]
  - Weight decreased [None]
  - Anxiety [None]
  - Insomnia [None]
  - Accidental overdose [None]
  - Supraventricular extrasystoles [None]
  - Product prescribing error [None]

NARRATIVE: CASE EVENT DATE: 20200122
